FAERS Safety Report 5465649-6 (Version None)
Quarter: 2007Q3

REPORT INFORMATION
  Report Type: 
  Country: None (occurrence: None)
  Receive Date: 20070919
  Receipt Date: 20070919
  Transmission Date: 20080115
  Serious: Yes (Death, Hospitalization)
  Sender: FDA-Public Use
  Company Number: None

PATIENT
  Age: 61 Year
  Sex: Male
  Weight: 73.4827 kg

DRUGS (14)
  1. ROTIGOTINE(DOSE UNKNOWN), PATCH (SILICONE) (ROTIGOTINE) [Suspect]
     Dosage: 12MG/24H,1 IN 1 D,TRANSDERMAL
     Route: 062
     Dates: start: 20030219, end: 20070522
  2. CARBIDOPA [Concomitant]
  3. LEVODOPA [Concomitant]
  4. ENTACAPONE [Concomitant]
  5. SELEGILINE HCL [Concomitant]
  6. DOXEPIN HCL [Concomitant]
  7. CITALOPRAM HYDROBROMIDE [Concomitant]
  8. DOXAZOSIN MESYLATE [Concomitant]
  9. TESTOSTERONE [Concomitant]
  10. RANITIDINE HYDROCHLORIDE [Concomitant]
  11. SENNA FRUIT [Concomitant]
  12. BISACODYL [Concomitant]
  13. FAMOTIDINE [Concomitant]
  14. COMTAN [Concomitant]

REACTIONS (7)
  - ANOXIC ENCEPHALOPATHY [None]
  - CHEST PAIN [None]
  - HAEMATOCRIT DECREASED [None]
  - HAEMOGLOBIN DECREASED [None]
  - INJURY [None]
  - OESOPHAGEAL ULCER [None]
  - UROSEPSIS [None]
